FAERS Safety Report 17408353 (Version 3)
Quarter: 2020Q1

REPORT INFORMATION
  Report Type: Other
  Country: DE (occurrence: GB)
  Receive Date: 20200212
  Receipt Date: 20200320
  Transmission Date: 20200409
  Serious: Yes (Hospitalization, Other)
  Sender: FDA-Public Use
  Company Number: GB-RECORDATI RARE DISEASES-2080183

PATIENT
  Age: 7 Year
  Sex: Female

DRUGS (5)
  1. CYSTADANE [Suspect]
     Active Substance: BETAINE
     Indication: HOMOCYSTINURIA
  2. PYRIDOXINE HYDROCHLORIDE. [Concomitant]
     Active Substance: PYRIDOXINE HYDROCHLORIDE
  3. CYSTADANE [Suspect]
     Active Substance: BETAINE
  4. CYSTADANE [Suspect]
     Active Substance: BETAINE
  5. CYSTADANE [Suspect]
     Active Substance: BETAINE

REACTIONS (8)
  - Ataxia [Recovered/Resolved]
  - Hypermethioninaemia [Recovered/Resolved]
  - Visual impairment [Recovered/Resolved]
  - Brain oedema [Recovered/Resolved]
  - VIth nerve disorder [Recovered/Resolved]
  - Headache [Recovered/Resolved]
  - Intracranial pressure increased [Recovered/Resolved]
  - Lethargy [Recovered/Resolved]
